FAERS Safety Report 12282006 (Version 4)
Quarter: 2017Q2

REPORT INFORMATION
  Report Type: Report from Study
  Country: US (occurrence: US)
  Receive Date: 20160419
  Receipt Date: 20170413
  Transmission Date: 20170830
  Serious: Yes (Death, Hospitalization, Other)
  Sender: FDA-Public Use
  Company Number: US-ACTELION-A-US2016-134503

PATIENT
  Age: 73 Year
  Sex: Female

DRUGS (27)
  1. CRESTOR [Concomitant]
     Active Substance: ROSUVASTATIN CALCIUM
     Dosage: 20 MG, UNK
  2. MONOCYCLINE [Concomitant]
     Dosage: 100 MG, BID
  3. DITROPAN [Concomitant]
     Active Substance: OXYBUTYNIN CHLORIDE
     Dosage: 5 MG, QD
  4. PROTONIX [Concomitant]
     Active Substance: PANTOPRAZOLE SODIUM
     Dosage: 40 MG, QPM
  5. OPSUMIT [Suspect]
     Active Substance: MACITENTAN
     Indication: PULMONARY HYPERTENSION
     Dosage: 10 MG, QD
     Route: 048
     Dates: start: 20160201, end: 20170104
  6. PLAVIX [Concomitant]
     Active Substance: CLOPIDOGREL BISULFATE
     Dosage: 75 MG, UNK
  7. REVATIO [Concomitant]
     Active Substance: SILDENAFIL CITRATE
     Dosage: 20 MG, TID
  8. ALLOPURINOL. [Concomitant]
     Active Substance: ALLOPURINOL
     Dosage: 100 MG, BID
  9. CLINDAMYCIN. [Suspect]
     Active Substance: CLINDAMYCIN
     Indication: PRODUCT USED FOR UNKNOWN INDICATION
     Route: 065
  10. BENICAR [Concomitant]
     Active Substance: OLMESARTAN MEDOXOMIL
     Dosage: 20 MG, QD
  11. VITAMIN D2 [Concomitant]
     Active Substance: ERGOCALCIFEROL
     Dosage: 50000 U, Q1MONTH
  12. ASA [Concomitant]
     Active Substance: ASPIRIN
     Dosage: 81 MG, QD
  13. PEPCID [Concomitant]
     Active Substance: FAMOTIDINE
     Dosage: 20 MG, BID
  14. PERCOCET [Concomitant]
     Active Substance: ACETAMINOPHEN\OXYCODONE HYDROCHLORIDE
     Dosage: 5/325MG, Q4HRS, PRN
  15. TORSEMIDE. [Concomitant]
     Active Substance: TORSEMIDE
     Dosage: 10 MG, UNK
  16. LOFIBRA [Concomitant]
     Active Substance: FENOFIBRATE
     Dosage: 54 MG, QD
  17. TRENTAL [Concomitant]
     Active Substance: PENTOXIFYLLINE
     Dosage: 400 MG, TID
  18. DERMADEX [Concomitant]
     Dosage: 4 MG, UNK
  19. SINGULAIR [Concomitant]
     Active Substance: MONTELUKAST SODIUM
     Dosage: 10 MG, QD
  20. NORCO [Concomitant]
     Active Substance: ACETAMINOPHEN\HYDROCODONE BITARTRATE
     Dosage: 7.5/325MG, Q6HRS, PRN
  21. OXYCONTIN [Concomitant]
     Active Substance: OXYCODONE HYDROCHLORIDE
  22. LYRICA [Concomitant]
     Active Substance: PREGABALIN
     Dosage: 50 MG, BID
  23. BIOTIN [Concomitant]
     Active Substance: BIOTIN
     Dosage: 5 MG, QD
  24. FENOFIBRATE. [Concomitant]
     Active Substance: FENOFIBRATE
     Dosage: 160 MG, UNK
  25. SAXAGLIPTIN [Concomitant]
     Active Substance: SAXAGLIPTIN
     Dosage: 2.5 MG, QD
  26. SYNTHROID [Concomitant]
     Active Substance: LEVOTHYROXINE SODIUM
     Dosage: 25 MCG, UNK
  27. PANTOPRAZOLE [Concomitant]
     Active Substance: PANTOPRAZOLE
     Dosage: 40 MG, QD

REACTIONS (17)
  - Gastrointestinal disorder [Unknown]
  - Wound infection [Recovering/Resolving]
  - Debridement [Unknown]
  - Peripheral swelling [Recovering/Resolving]
  - Dizziness [Unknown]
  - Peripheral vascular disorder [Unknown]
  - Post procedural complication [Recovering/Resolving]
  - Wound haemorrhage [Recovering/Resolving]
  - Wound drainage [Recovering/Resolving]
  - Gait disturbance [Unknown]
  - Skin ulcer [Recovered/Resolved]
  - Malaise [Unknown]
  - Pain [Unknown]
  - Cellulitis [Recovered/Resolved]
  - Cancer surgery [Unknown]
  - Oedema [Recovering/Resolving]
  - Haemorrhagic stroke [Fatal]

NARRATIVE: CASE EVENT DATE: 20160301
